FAERS Safety Report 6308676-9 (Version None)
Quarter: 2009Q3

REPORT INFORMATION
  Report Type: 
  Country: None (occurrence: None)
  Receive Date: 20090813
  Receipt Date: 20090805
  Transmission Date: 20100115
  Serious: Yes (Other)
  Sender: FDA-Public Use
  Company Number: AU-SANOFI-SYNTHELABO-A01200907602

PATIENT
  Sex: Female

DRUGS (3)
  1. PLAVIX [Suspect]
     Indication: STENT PLACEMENT
     Route: 048
     Dates: start: 20000101
  2. PLAVIX [Suspect]
     Indication: ANGINA PECTORIS
     Route: 048
     Dates: start: 20000101
  3. PLAVIX [Suspect]
     Indication: CORONARY ARTERY OCCLUSION
     Route: 048
     Dates: start: 20000101

REACTIONS (3)
  - CAROTID ARTERY STENOSIS [None]
  - CONDITION AGGRAVATED [None]
  - CORONARY ARTERY OCCLUSION [None]
